FAERS Safety Report 5153848-2 (Version None)
Quarter: 2006Q4

REPORT INFORMATION
  Report Type: 
  Country: None (occurrence: None)
  Receive Date: 20061120
  Receipt Date: 20061113
  Transmission Date: 20070319
  Serious: Yes (Death)
  Sender: FDA-Public Use
  Company Number: PHHO2006MX19263

PATIENT
  Age: 81 Year
  Sex: Female

DRUGS (3)
  1. ZELMAC / HTF 919A [Suspect]
     Dosage: 6 MG, BID
     Route: 048
     Dates: start: 20060901
  2. ANTIHYPERTENSIVES [Concomitant]
  3. ANTICOAGULANTS [Concomitant]

REACTIONS (1)
  - CEREBROVASCULAR ACCIDENT [None]
